FAERS Safety Report 8295551-6 (Version None)
Quarter: 2012Q2

REPORT INFORMATION
  Report Type: 
  Country: None (occurrence: None)
  Receive Date: 20120413
  Receipt Date: 20120403
  Transmission Date: 20120825
  Serious: Yes (Other)
  Sender: FDA-Public Use
  Company Number: AUR-APU-2012-01682

PATIENT
  Age: 85 Year
  Sex: Female

DRUGS (1)
  1. MIRTAZAPINE [Suspect]
     Indication: DEPRESSION
     Dosage: (30 MG)

REACTIONS (6)
  - MIGRAINE [None]
  - ANXIETY [None]
  - RESTLESS LEGS SYNDROME [None]
  - PRODUCT SUBSTITUTION ISSUE [None]
  - PRODUCT QUALITY ISSUE [None]
  - PHOTOPSIA [None]
